FAERS Safety Report 14291248 (Version 1)
Quarter: 2017Q4

REPORT INFORMATION
  Report Type: Spontaneous
  Country: US (occurrence: US)
  Receive Date: 20171215
  Receipt Date: 20171215
  Transmission Date: 20180321
  Serious: Yes (Other)
  Sender: FDA-Public Use
  Company Number: US-PFIZER INC-2017532083

PATIENT
  Sex: Female

DRUGS (1)
  1. ADVIL [Suspect]
     Active Substance: IBUPROFEN
     Dosage: UNK
     Dates: start: 2017, end: 2017

REACTIONS (2)
  - Intentional product misuse [Recovered/Resolved]
  - Burn oral cavity [Recovered/Resolved]

NARRATIVE: CASE EVENT DATE: 2017
